FAERS Safety Report 7445449-8 (Version None)
Quarter: 2011Q2

REPORT INFORMATION
  Report Type: 
  Country: None (occurrence: None)
  Receive Date: 20110420
  Receipt Date: 20110407
  Transmission Date: 20111010
  Serious: Yes (Hospitalization, Other)
  Sender: FDA-Public Use
  Company Number: 2011MA003536

PATIENT
  Age: 2 Month
  Sex: Male

DRUGS (1)
  1. HYDROCHLOROTHIAZIDE [Suspect]
     Indication: WATER INTOXICATION
     Dosage: 2 MG/KG;BID;PO
     Route: 048

REACTIONS (12)
  - LETHARGY [None]
  - POLYDIPSIA [None]
  - PALLOR [None]
  - DYSPNOEA [None]
  - BRAIN OEDEMA [None]
  - HYPOTHERMIA [None]
  - ASTHENIA [None]
  - POLYURIA [None]
  - HYPERHIDROSIS [None]
  - HYPOKALAEMIA [None]
  - WATER INTOXICATION [None]
  - HYPERNATRAEMIA [None]
